FAERS Safety Report 6108019-X (Version None)
Quarter: 2009Q1

REPORT INFORMATION
  Report Type: 
  Country: None (occurrence: None)
  Receive Date: 20090309
  Receipt Date: 20090302
  Transmission Date: 20090719
  Serious: Yes (Other)
  Sender: FDA-Public Use
  Company Number: US-AVENTIS-200911644US

PATIENT
  Age: 73 Year
  Sex: Female

DRUGS (6)
  1. LANTUS [Suspect]
     Route: 058
  2. OPTICLIK (INSULIN INJECTION PEN) [Suspect]
  3. GLUCOPHAGE [Concomitant]
  4. METFORMIN [Concomitant]
  5. TRICOR [Concomitant]
  6. BENICAR [Concomitant]

REACTIONS (2)
  - CATARACT [None]
  - VISUAL ACUITY REDUCED [None]
